FAERS Safety Report 23271845 (Version 1)
Quarter: 2023Q4

REPORT INFORMATION
  Report Type: Report from Study
  Country: EG (occurrence: None)
  Receive Date: 20231207
  Receipt Date: 20231207
  Transmission Date: 20240109
  Serious: Yes (Death)
  Sender: FDA-Public Use
  Company Number: 2023A277904

PATIENT
  Age: 23257 Day
  Sex: Male

DRUGS (3)
  1. IMFINZI [Suspect]
     Active Substance: DURVALUMAB
     Indication: Cholangiocarcinoma
     Route: 041
     Dates: start: 20231025
  2. GAMZAR [Concomitant]
     Dosage: 1800 MG D1 AND D8
  3. CARBOPLATIN [Concomitant]
     Active Substance: CARBOPLATIN
     Dosage: 450 MG D1 AND D8

REACTIONS (1)
  - Death [Fatal]

NARRATIVE: CASE EVENT DATE: 20231115
